FAERS Safety Report 4877679-3 (Version None)
Quarter: 2005Q4

REPORT INFORMATION
  Report Type: 
  Country: None (occurrence: None)
  Receive Date: 20051206
  Receipt Date: 20051011
  Transmission Date: 20060501
  Serious: No
  Sender: FDA-Public Use
  Company Number: USA0509109047

PATIENT
  Age: 57 Year
  Sex: Male

DRUGS (4)
  1. CYMBALTA [Suspect]
     Indication: DEPRESSION
     Dosage: 30 MG DAY
  2. NEURONTIN [Concomitant]
  3. DILAUDID [Concomitant]
  4. CLARITIN-D [Concomitant]

REACTIONS (5)
  - ANOREXIA [None]
  - CONSTIPATION [None]
  - FAECES HARD [None]
  - NAUSEA [None]
  - PAINFUL DEFAECATION [None]
